FAERS Safety Report 23558203 (Version 1)
Quarter: 2024Q1

REPORT INFORMATION
  Report Type: Spontaneous
  Country: US (occurrence: US)
  Receive Date: 20240223
  Receipt Date: 20240223
  Transmission Date: 20240409
  Serious: Yes (Hospitalization, Other)
  Sender: FDA-Public Use
  Company Number: US-TEVA-2023-US-2928614

PATIENT
  Age: 53 Year
  Sex: Female

DRUGS (3)
  1. AJOVY [Suspect]
     Active Substance: FREMANEZUMAB-VFRM
     Indication: Migraine
     Dosage: DOSAGE TEXT: EVERY THREE MONTHS
     Route: 065
     Dates: start: 20190101, end: 20230710
  2. AJOVY [Suspect]
     Active Substance: FREMANEZUMAB-VFRM
  3. BOTOX [Suspect]
     Active Substance: ONABOTULINUMTOXINA
     Indication: Product used for unknown indication
     Route: 065
     Dates: start: 20230817

REACTIONS (4)
  - Hospitalisation [Unknown]
  - Emergency care [Unknown]
  - Dehydration [Unknown]
  - Nausea [Unknown]
